FAERS Safety Report 19037018 (Version 1)
Quarter: 2021Q1

REPORT INFORMATION
  Report Type: Spontaneous
  Country: DE (occurrence: DE)
  Receive Date: 20210322
  Receipt Date: 20210322
  Transmission Date: 20210420
  Serious: Yes (Hospitalization)
  Sender: FDA-Public Use
  Company Number: DE-AUROBINDO-AUR-APL-2021-010952

PATIENT
  Age: 6 Year
  Sex: Male
  Weight: 32 kg

DRUGS (3)
  1. BOTOX [Concomitant]
     Active Substance: ONABOTULINUMTOXINA
     Indication: TORTICOLLIS
     Dosage: 1 DOSAGE FORM (EVERY 3 MONTHS)
     Route: 065
  2. RISPERIDONE. [Suspect]
     Active Substance: RISPERIDONE
     Indication: ACCIDENTAL EXPOSURE TO PRODUCT BY CHILD
     Dosage: 1 MILLIGRAM (EVERY TOTAL)
     Route: 048
     Dates: start: 20181224
  3. GUANFACINE. [Suspect]
     Active Substance: GUANFACINE
     Indication: ACCIDENTAL EXPOSURE TO PRODUCT BY CHILD
     Dosage: 1 MILLIGRAM (EVERY TOTAL)
     Route: 048
     Dates: start: 20181224

REACTIONS (3)
  - Accidental exposure to product by child [Recovered/Resolved]
  - No adverse event [Recovered/Resolved]
  - Product administration error [Recovered/Resolved]

NARRATIVE: CASE EVENT DATE: 20181224
